FAERS Safety Report 20121206 (Version 1)
Quarter: 2021Q4

REPORT INFORMATION
  Report Type: Spontaneous
  Country: US (occurrence: US)
  Receive Date: 20211127
  Receipt Date: 20211127
  Transmission Date: 20220303
  Serious: No
  Sender: FDA-Public Use
  Company Number: US-BIOGEN-2021BI01071814

PATIENT
  Age: 67 Year
  Sex: Female

DRUGS (1)
  1. TECFIDERA [Suspect]
     Active Substance: DIMETHYL FUMARATE
     Indication: Product used for unknown indication
     Route: 048
     Dates: start: 202005

REACTIONS (6)
  - Multiple sclerosis relapse [Unknown]
  - Sensory disturbance [Unknown]
  - Skin atrophy [Unknown]
  - Impaired healing [Unknown]
  - Vitreous floaters [Unknown]
  - Flushing [Unknown]

NARRATIVE: CASE EVENT DATE: 20211123
